FAERS Safety Report 5237826-0 (Version None)
Quarter: 2007Q1

REPORT INFORMATION
  Report Type: 
  Country: None (occurrence: None)
  Receive Date: 20070214
  Receipt Date: 20070202
  Transmission Date: 20070707
  Serious: Yes (Hospitalization)
  Sender: FDA-Public Use
  Company Number: US-ELI_LILLY_AND_COMPANY-US200702000680

PATIENT
  Age: 80 Year
  Sex: Female

DRUGS (3)
  1. FORTEO [Suspect]
     Indication: OSTEOPOROSIS
     Dosage: UNK, UNK
     Dates: start: 20061001, end: 20060101
  2. FORTEO [Suspect]
     Dates: start: 20070101
  3. B12 [Concomitant]
     Indication: PERNICIOUS ANAEMIA

REACTIONS (3)
  - DYSSTASIA [None]
  - FALL [None]
  - PAIN IN EXTREMITY [None]
